FAERS Safety Report 7508909-7 (Version None)
Quarter: 2011Q2

REPORT INFORMATION
  Report Type: 
  Country: None (occurrence: None)
  Receive Date: 20110527
  Receipt Date: 20110517
  Transmission Date: 20111010
  Serious: Yes (Other)
  Sender: FDA-Public Use
  Company Number: US-ENDO PHARMACEUTICALS INC.-SPLN20110054

PATIENT
  Sex: Female
  Weight: 20.43 kg

DRUGS (1)
  1. SUPPRELIN LA [Suspect]
     Indication: PRECOCIOUS PUBERTY
     Route: 058
     Dates: start: 20100615

REACTIONS (5)
  - FALL [None]
  - OSTEOGENESIS IMPERFECTA [None]
  - DRUG INEFFECTIVE [None]
  - UPPER LIMB FRACTURE [None]
  - LOWER LIMB FRACTURE [None]
